FAERS Safety Report 9586355 (Version 1)
Quarter: 2013Q4

REPORT INFORMATION
  Report Type: Spontaneous
  Country: US (occurrence: US)
  Receive Date: 20131003
  Receipt Date: 20131003
  Transmission Date: 20140711
  Serious: Yes (Other)
  Sender: FDA-Public Use
  Company Number: US-B.I. PHARMACEUTICALS,INC./RIDGEFIELD-2013-BI-30176BP

PATIENT
  Age: 68 Year
  Sex: Female
  Weight: 55 kg

DRUGS (8)
  1. SPIRIVA [Suspect]
     Indication: CHRONIC OBSTRUCTIVE PULMONARY DISEASE
     Dosage: 18 MCG
     Route: 055
     Dates: start: 201201
  2. METOPROLOL [Concomitant]
     Dosage: 25 MG
     Route: 048
  3. PROTONIX [Concomitant]
     Dosage: 40 MG
     Route: 048
  4. XARELTO [Concomitant]
     Indication: ATRIAL FIBRILLATION
  5. SINGULAIR [Concomitant]
     Indication: ASTHMA
     Dosage: 10 MG
     Route: 048
  6. TRAMADOL [Concomitant]
     Indication: PAIN
     Route: 048
  7. XANAX [Concomitant]
     Indication: ANXIETY
     Route: 048
  8. NORVASC [Concomitant]
     Indication: HYPERTENSION
     Dosage: 10 MG
     Route: 048

REACTIONS (3)
  - Lung neoplasm malignant [Not Recovered/Not Resolved]
  - Oral fungal infection [Not Recovered/Not Resolved]
  - Throat lesion [Not Recovered/Not Resolved]
